FAERS Safety Report 16561118 (Version 2)
Quarter: 2019Q3

REPORT INFORMATION
  Report Type: Spontaneous
  Country: US (occurrence: US)
  Receive Date: 20190711
  Receipt Date: 20190711
  Transmission Date: 20191004
  Serious: Yes (Other)
  Sender: FDA-Public Use
  Company Number: US-THE MENTHOLATUM COMPANY-2070680

PATIENT
  Sex: Female

DRUGS (1)
  1. OXY RAPID TREATMENT FACE WASH MAXIMUM ACTION [Suspect]
     Active Substance: BENZOYL PEROXIDE

REACTIONS (1)
  - Swelling [Unknown]

NARRATIVE: CASE EVENT DATE: 20190530
